FAERS Safety Report 19114797 (Version 1)
Quarter: 2021Q2

REPORT INFORMATION
  Report Type: Spontaneous
  Country: US (occurrence: US)
  Receive Date: 20210408
  Receipt Date: 20210408
  Transmission Date: 20210717
  Serious: Yes (Other)
  Sender: FDA-Public Use
  Company Number: US-CELLTRION-2021-US-006551

PATIENT
  Age: 71 Year
  Sex: Female

DRUGS (2)
  1. ANASTROZOLE. [Suspect]
     Active Substance: ANASTROZOLE
     Indication: BREAST CANCER
  2. LEVOFLOXACIN (NON?SPECIFIC) [Suspect]
     Active Substance: LEVOFLOXACIN
     Indication: PRODUCT USED FOR UNKNOWN INDICATION
     Dosage: 750MG ONCE DAILY

REACTIONS (3)
  - Electrocardiogram QT prolonged [Unknown]
  - Drug interaction [Unknown]
  - Ventricular tachycardia [Unknown]
